FAERS Safety Report 25048348 (Version 1)
Quarter: 2025Q1

REPORT INFORMATION
  Report Type: Spontaneous
  Country: CA (occurrence: CA)
  Receive Date: 20250307
  Receipt Date: 20250307
  Transmission Date: 20250408
  Serious: Yes (Death, Hospitalization, Other)
  Sender: CELLTRION
  Company Number: CA-CELLTRION INC.-2025CA006374

PATIENT

DRUGS (22)
  1. RITUXIMAB [Suspect]
     Active Substance: RITUXIMAB
     Indication: Rheumatoid arthritis
     Route: 042
  2. FOSAMAX [Concomitant]
     Active Substance: ALENDRONATE SODIUM
  3. ACETAMINOPHEN [Concomitant]
     Active Substance: ACETAMINOPHEN
     Indication: Premedication
     Route: 048
  4. ALTACE [Concomitant]
     Active Substance: RAMIPRIL
  5. AZATHIOPRINE [Concomitant]
     Active Substance: AZATHIOPRINE
  6. CEFADROXIL [Concomitant]
     Active Substance: CEFADROXIL
     Route: 065
  7. CELEBREX [Concomitant]
     Active Substance: CELECOXIB
  8. COLACE [Concomitant]
     Active Substance: DOCUSATE SODIUM
  9. CYCLOBENZAPRINE [Concomitant]
     Active Substance: CYCLOBENZAPRINE
  10. DILAUDID [Concomitant]
     Active Substance: HYDROMORPHONE HYDROCHLORIDE
  11. DIPHENHYDRAMINE HYDROCHLORIDE [Concomitant]
     Active Substance: DIPHENHYDRAMINE HYDROCHLORIDE
     Indication: Premedication
     Route: 048
  12. ALLOPURINOL [Concomitant]
     Active Substance: ALLOPURINOL
  13. ESOMEPRAZOLE [Concomitant]
     Active Substance: ESOMEPRAZOLE
     Route: 065
  14. FOLIC ACID [Concomitant]
     Active Substance: FOLIC ACID
  15. HYDROMORPHONE [Concomitant]
     Active Substance: HYDROMORPHONE
  16. HYDROXYCHLOROQUINE SULFATE [Concomitant]
     Active Substance: HYDROXYCHLOROQUINE SULFATE
  17. METHYLPREDNISOLONE [Concomitant]
     Active Substance: METHYLPREDNISOLONE
     Indication: Premedication
     Route: 042
  18. PREDNISONE [Concomitant]
     Active Substance: PREDNISONE
  19. SENOKOT [Concomitant]
     Active Substance: SENNOSIDES
  20. SULFASALAZINE [Concomitant]
     Active Substance: SULFASALAZINE
  21. SYNTHROID [Concomitant]
     Active Substance: LEVOTHYROXINE SODIUM
  22. VESICARE [Concomitant]
     Active Substance: SOLIFENACIN SUCCINATE

REACTIONS (22)
  - Arthritis [Fatal]
  - Arthropathy [Fatal]
  - Back injury [Fatal]
  - Hypervolaemia [Fatal]
  - Loss of personal independence in daily activities [Fatal]
  - Lower limb fracture [Fatal]
  - Oxygen saturation decreased [Fatal]
  - Psoriasis [Fatal]
  - Pulmonary fibrosis [Fatal]
  - Sputum discoloured [Fatal]
  - Spinal disorder [Fatal]
  - Cough [Fatal]
  - Dyspnoea [Fatal]
  - Hypertension [Fatal]
  - Hypoaesthesia [Fatal]
  - Infection [Fatal]
  - Infusion related reaction [Fatal]
  - Oropharyngeal pain [Fatal]
  - Pain [Fatal]
  - Respiratory failure [Fatal]
  - Arthritis infective [Fatal]
  - Bronchitis [Fatal]
